FAERS Safety Report 7532306-1 (Version None)
Quarter: 2011Q2

REPORT INFORMATION
  Report Type: 
  Country: None (occurrence: None)
  Receive Date: 20110608
  Receipt Date: 20110531
  Transmission Date: 20111010
  Serious: Yes (Death, Hospitalization)
  Sender: FDA-Public Use
  Company Number: GR-BRISTOL-MYERS SQUIBB COMPANY-15792278

PATIENT
  Age: 54 Year
  Sex: Male

DRUGS (2)
  1. HEPARIN SODIUM [Suspect]
  2. WARFARIN SODIUM [Suspect]
     Indication: ATRIAL FIBRILLATION
     Dosage: 5MG FIRST DAY THEN 2MG/DAY

REACTIONS (4)
  - CEREBRAL INFARCTION [None]
  - MULTI-ORGAN FAILURE [None]
  - DISSEMINATED INTRAVASCULAR COAGULATION [None]
  - INTRACARDIAC THROMBUS [None]
